FAERS Safety Report 5037219-5 (Version None)
Quarter: 2006Q2

REPORT INFORMATION
  Report Type: 
  Country: None (occurrence: None)
  Receive Date: 20060628
  Receipt Date: 20060616
  Transmission Date: 20061013
  Serious: Yes (Hospitalization)
  Sender: FDA-Public Use
  Company Number: KR-SANOFI-SYNTHELABO-A01200604590

PATIENT
  Sex: Male
  Weight: 61 kg

DRUGS (7)
  1. ISOSORBIDE MONONITRATE [Concomitant]
     Route: 048
     Dates: start: 20041014
  2. ATORVASTATIN CALCIUM [Concomitant]
     Route: 048
     Dates: start: 20041217
  3. BETAXOLOL [Concomitant]
     Route: 048
     Dates: start: 20041115
  4. VALSARTAN [Concomitant]
     Route: 048
     Dates: start: 20041029
  5. NIFEDIPINE [Concomitant]
     Route: 048
     Dates: start: 20041012
  6. ASPIRIN [Suspect]
     Indication: THROMBOSIS PROPHYLAXIS
     Route: 048
     Dates: start: 20041012, end: 20050422
  7. PLAVIX [Suspect]
     Route: 048
     Dates: start: 20041020

REACTIONS (2)
  - GASTRIC CANCER [None]
  - HAEMATOCHEZIA [None]
